FAERS Safety Report 14233646 (Version 2)
Quarter: 2017Q4

REPORT INFORMATION
  Report Type: Spontaneous
  Country: US (occurrence: US)
  Receive Date: 20171129
  Receipt Date: 20171205
  Transmission Date: 20180321
  Serious: Yes (Other)
  Sender: FDA-Public Use
  Company Number: US-BAYER-2017-226257

PATIENT
  Age: 86 Year
  Sex: Female

DRUGS (3)
  1. ACETYLSALICYLIC ACID({=100 MG) [Suspect]
     Active Substance: ASPIRIN
     Dosage: UNK
  2. APIXABAN [Suspect]
     Active Substance: APIXABAN
     Dosage: UNK
  3. MELOXICAM. [Suspect]
     Active Substance: MELOXICAM
     Dosage: UNK

REACTIONS (3)
  - Skin haemorrhage [Unknown]
  - Skin exfoliation [Unknown]
  - Haemoglobin decreased [Unknown]
